FAERS Safety Report 10278011 (Version 2)
Quarter: 2014Q3

REPORT INFORMATION
  Report Type: Spontaneous
  Country: DE (occurrence: DE)
  Receive Date: 20140704
  Receipt Date: 20140724
  Transmission Date: 20150326
  Serious: Yes (Other)
  Sender: FDA-Public Use
  Company Number: DE-UCBSA-2014004070

PATIENT
  Sex: Male

DRUGS (9)
  1. VPA [Concomitant]
     Dosage: 2700 MG
  2. CBZ [Concomitant]
     Dosage: UNK
  3. VIMPAT [Suspect]
     Active Substance: LACOSAMIDE
     Dosage: 100MG
  4. VPA [Concomitant]
     Dosage: UNK
  5. VGB [Concomitant]
     Dosage: UNK
  6. LAMOTRIGINE. [Concomitant]
     Active Substance: LAMOTRIGINE
     Dosage: 100 MG
  7. ESM [Concomitant]
  8. GBP [Concomitant]
     Dosage: UNK
  9. PHT [Concomitant]
     Active Substance: PHENYTOIN
     Dosage: UNK
     Dates: start: 1992

REACTIONS (3)
  - Myoclonic epilepsy [Unknown]
  - Convulsion [Unknown]
  - Generalised tonic-clonic seizure [Unknown]

NARRATIVE: CASE EVENT DATE: 201403
